FAERS Safety Report 10021001 (Version 1)
Quarter: 2014Q1

REPORT INFORMATION
  Report Type: Spontaneous
  Country: US (occurrence: None)
  Receive Date: 20140318
  Receipt Date: 20140318
  Transmission Date: 20141002
  Serious: Yes (Hospitalization)
  Sender: FDA-Public Use
  Company Number: None

PATIENT
  Sex: Female

DRUGS (4)
  1. SOVALDI 400MG GILEAD SCIENCES [Suspect]
     Indication: CHRONIC HEPATITIS C
     Route: 048
     Dates: start: 20140128, end: 20140305
  2. SOVALDI 400MG GILEAD SCIENCES [Suspect]
     Indication: COMA HEPATIC
     Route: 048
     Dates: start: 20140128, end: 20140305
  3. RIBAVIRIN [Suspect]
     Indication: CHRONIC HEPATITIS C
     Dosage: BIC
     Route: 048
     Dates: start: 20140128, end: 20140305
  4. RIBAVIRIN [Suspect]
     Indication: COMA HEPATIC
     Dosage: BIC
     Route: 048
     Dates: start: 20140128, end: 20140305

REACTIONS (4)
  - Sepsis [None]
  - Jaundice [None]
  - Pneumonia [None]
  - Renal failure [None]
